FAERS Safety Report 14924505 (Version 1)
Quarter: 2018Q2

REPORT INFORMATION
  Report Type: Report from Study
  Country: None (occurrence: US)
  Receive Date: 20180522
  Receipt Date: 20180522
  Transmission Date: 20180711
  Serious: Yes (Other)
  Sender: FDA-Public Use
  Company Number: US-ABBVIE-18K-163-2211831-00

PATIENT
  Age: 47 Year
  Sex: Female

DRUGS (1)
  1. HUMIRA [Suspect]
     Active Substance: ADALIMUMAB
     Indication: ANKYLOSING SPONDYLITIS
     Route: 058

REACTIONS (8)
  - Influenza [Not Recovered/Not Resolved]
  - Oedematous kidney [Recovered/Resolved]
  - Kidney infection [Recovered/Resolved]
  - Staphylococcal infection [Recovered/Resolved]
  - Bronchitis [Recovered/Resolved]
  - Nephrolithiasis [Recovered/Resolved]
  - Bronchitis [Recovered/Resolved]
  - Infectious mononucleosis [Recovered/Resolved]

NARRATIVE: CASE EVENT DATE: 201712
